FAERS Safety Report 9553764 (Version 1)
Quarter: 2013Q3

REPORT INFORMATION
  Report Type: Spontaneous
  Country: US (occurrence: US)
  Receive Date: 20130925
  Receipt Date: 20130925
  Transmission Date: 20140515
  Serious: No
  Sender: FDA-Public Use
  Company Number: US-FOUGERA-2013FO000082

PATIENT
  Sex: Female

DRUGS (2)
  1. LIDOCAINE AND; PRILOCAINE [Suspect]
     Indication: LOCAL ANAESTHESIA
  2. BOTOX [Concomitant]
     Indication: PRODUCT USED FOR UNKNOWN INDICATION

REACTIONS (1)
  - Drug ineffective [Unknown]
